FAERS Safety Report 5110068-5 (Version None)
Quarter: 2006Q3

REPORT INFORMATION
  Report Type: 
  Country: None (occurrence: None)
  Receive Date: 20060919
  Receipt Date: 20060919
  Transmission Date: 20061208
  Serious: Yes (Other)
  Sender: FDA-Public Use
  Company Number: None

PATIENT
  Sex: Female
  Weight: 65.318 kg

DRUGS (1)
  1. SEROQUEL [Suspect]
     Indication: BIPOLAR DISORDER
     Dosage: 200MG   BEDTIME   PO
     Route: 048
     Dates: start: 20060820, end: 20060823

REACTIONS (1)
  - NEUROLEPTIC MALIGNANT SYNDROME [None]
